FAERS Safety Report 5919673-7 (Version None)
Quarter: 2008Q4

REPORT INFORMATION
  Report Type: 
  Country: None (occurrence: None)
  Receive Date: 20081015
  Receipt Date: 20081004
  Transmission Date: 20090506
  Serious: Yes (Life-Threatening, Other)
  Sender: FDA-Public Use
  Company Number: NL-BAXTER-2008BH010941

PATIENT
  Age: 15 Year
  Sex: Male

DRUGS (1)
  1. SEVOFLURANE [Suspect]
     Indication: ANAESTHESIA
     Dosage: DOSE UNIT:UNKNOWN
     Route: 050

REACTIONS (3)
  - CARDIAC ARREST [None]
  - LONG QT SYNDROME [None]
  - TORSADE DE POINTES [None]
